FAERS Safety Report 8629943 (Version 2)
Quarter: 2013Q4

REPORT INFORMATION
  Report Type: Spontaneous
  Country: US (occurrence: US)
  Receive Date: 20120622
  Receipt Date: 20131011
  Transmission Date: 20140711
  Serious: Yes (Hospitalization, Disabling)
  Sender: FDA-Public Use
  Company Number: US-ASTRAZENECA-2012SE36358

PATIENT
  Sex: Female
  Weight: 77.1 kg

DRUGS (11)
  1. NEXIUM [Suspect]
     Indication: GASTROOESOPHAGEAL REFLUX DISEASE
     Route: 048
  2. NEXIUM [Suspect]
     Indication: GASTROOESOPHAGEAL REFLUX DISEASE
     Route: 048
  3. PROTONIX [Concomitant]
     Dates: start: 1999, end: 2012
  4. PEPCID [Concomitant]
  5. KEPPRA [Concomitant]
  6. TOPAMAX [Concomitant]
     Indication: CONVULSION
  7. FIORICET [Concomitant]
     Indication: MIGRAINE
  8. PHENERGAN [Concomitant]
     Indication: NAUSEA
  9. VICODIN [Concomitant]
     Indication: PAIN
  10. KLONOPIN [Concomitant]
     Indication: NAUSEA
  11. ATIVAN [Concomitant]

REACTIONS (12)
  - Convulsion [Unknown]
  - Femur fracture [Unknown]
  - Abdominal discomfort [Unknown]
  - Osteoporosis [Unknown]
  - Multiple fractures [Unknown]
  - Osteoarthritis [Unknown]
  - Fractured coccyx [Unknown]
  - Arthritis [Unknown]
  - Depression [Unknown]
  - Rheumatoid arthritis [Unknown]
  - Hypovitaminosis [Unknown]
  - Bone neoplasm [Unknown]
